FAERS Safety Report 6596918-4 (Version None)
Quarter: 2010Q1

REPORT INFORMATION
  Report Type: 
  Country: None (occurrence: None)
  Receive Date: 20100223
  Receipt Date: 20100209
  Transmission Date: 20100710
  Serious: Yes (Other)
  Sender: FDA-Public Use
  Company Number: NZ-MYLANLABS-2010S1002050

PATIENT
  Age: 33 Year
  Sex: Female

DRUGS (2)
  1. ROPINIROLE [Suspect]
     Indication: RESTLESS LEGS SYNDROME
     Route: 048
  2. PARADEX [Interacting]
     Indication: ANALGESIC THERAPY
     Route: 048

REACTIONS (3)
  - DRUG INTERACTION [None]
  - HYPERSOMNIA [None]
  - VISUAL IMPAIRMENT [None]
